FAERS Safety Report 9235651 (Version 1)
Quarter: 2013Q1

REPORT INFORMATION
  Report Type: Spontaneous
  Country: US (occurrence: None)
  Receive Date: 20121031
  Receipt Date: 20121031
  Transmission Date: 20140127
  Serious: Yes (Other)
  Sender: FDA-Public Use
  Company Number: PHEH2012US031177

PATIENT
  Age: 54 Year
  Sex: Female

DRUGS (4)
  1. GILENYA (FTY) CAPSULE, 0.5MG [Suspect]
     Indication: RELAPSING-REMITTING MULTIPLE SCLEROSIS
     Route: 048
     Dates: start: 20110706
  2. GABAPENTIN (GABAPENTIN) [Concomitant]
  3. BACLOFEN (BACLOFEN) [Concomitant]
  4. RITALIN (METHYLPHENIDATE HYDROCHLORIDE) [Concomitant]

REACTIONS (3)
  - Urine leukocyte esterase positive [None]
  - White blood cells urine positive [None]
  - Urinary tract infection [None]
